FAERS Safety Report 9492876 (Version 1)
Quarter: 2013Q3

REPORT INFORMATION
  Report Type: Report from Study
  Country: NL (occurrence: NL)
  Receive Date: 20130901
  Receipt Date: 20130901
  Transmission Date: 20140515
  Serious: Yes (Death)
  Sender: FDA-Public Use
  Company Number: NL-ROCHE-1268758

PATIENT
  Sex: Male

DRUGS (13)
  1. MIRCERA [Suspect]
     Indication: RENAL FAILURE
     Route: 058
     Dates: start: 20121102
  2. ACENOCOUMAROL [Concomitant]
     Route: 048
  3. ALPHACALCIDOL [Concomitant]
     Route: 048
  4. BUMETANIDE [Concomitant]
     Route: 048
  5. CODEINE PHOSPHATE [Concomitant]
     Route: 048
  6. GLICLAZIDE [Concomitant]
     Route: 048
  7. LEVOTHYROXINE SODIUM [Concomitant]
     Route: 048
  8. PRIMIDON [Concomitant]
     Route: 048
  9. PROPRANOLOL [Concomitant]
     Route: 048
  10. QUINAPRIL [Concomitant]
     Route: 048
  11. SPIRONOLACTONE [Concomitant]
     Route: 048
  12. CARVEDILOL [Concomitant]
     Route: 048
  13. PRAVASTATIN [Concomitant]
     Route: 048

REACTIONS (1)
  - Death [Fatal]
